FAERS Safety Report 6526950-8 (Version None)
Quarter: 2009Q4

REPORT INFORMATION
  Report Type: 
  Country: None (occurrence: None)
  Receive Date: 20091229
  Receipt Date: 20091211
  Transmission Date: 20100525
  Serious: Yes (Other)
  Sender: FDA-Public Use
  Company Number: 002525

PATIENT
  Sex: Female
  Weight: 80 kg

DRUGS (5)
  1. VIMPAT [Suspect]
     Indication: PARTIAL SEIZURES
     Dosage: (100 MG BID ORAL)
     Route: 048
     Dates: start: 20090926
  2. DIHYDANTOIN [Concomitant]
  3. TRILEPTAL [Concomitant]
  4. IMOVANE [Concomitant]
  5. RSIPERDAL [Concomitant]

REACTIONS (4)
  - CONVULSION [None]
  - INSOMNIA [None]
  - IRRITABILITY [None]
  - POLYDIPSIA [None]
